FAERS Safety Report 16252649 (Version 1)
Quarter: 2019Q2

REPORT INFORMATION
  Report Type: Spontaneous
  Country: US (occurrence: US)
  Receive Date: 20190429
  Receipt Date: 20190429
  Transmission Date: 20190711
  Serious: Yes (Other)
  Sender: FDA-Public Use
  Company Number: US-SAGENT PHARMACEUTICALS-2019SAG000760

PATIENT

DRUGS (4)
  1. CISPLATIN. [Suspect]
     Active Substance: CISPLATIN
     Indication: ANAL SQUAMOUS CELL CARCINOMA
     Dosage: 40 MG/M2, DAY 1
     Route: 042
  2. FLUOROURACIL 5 FU [Suspect]
     Active Substance: FLUOROURACIL
     Indication: ANAL SQUAMOUS CELL CARCINOMA
     Dosage: 400 MG/M2, DAY 1
     Route: 040
  3. LEUCOVORIN CALCIUM. [Suspect]
     Active Substance: LEUCOVORIN CALCIUM
     Indication: ANAL SQUAMOUS CELL CARCINOMA
     Dosage: 400 MG/M2, DAY 1
     Route: 042
  4. FLUOROURACIL 5 FU [Suspect]
     Active Substance: FLUOROURACIL
     Dosage: 1000 MG/M2, DAYS 1 AND 2 EVERY 14 DAYS
     Route: 041

REACTIONS (1)
  - Febrile neutropenia [Unknown]
